FAERS Safety Report 8317858-6 (Version None)
Quarter: 2012Q2

REPORT INFORMATION
  Report Type: 
  Country: None (occurrence: None)
  Receive Date: 20120427
  Receipt Date: 20120418
  Transmission Date: 20120825
  Serious: Yes (Other)
  Sender: FDA-Public Use
  Company Number: US-JNJFOC-20120408281

PATIENT
  Sex: Female
  Weight: 79.38 kg

DRUGS (3)
  1. UNSPECIFIED HYPERTENSIVE MEDICATION [Suspect]
     Indication: HYPERTENSION
     Route: 048
  2. DURAGESIC-100 [Suspect]
     Route: 062
  3. DURAGESIC-100 [Suspect]
     Indication: BACK PAIN
     Route: 062

REACTIONS (4)
  - HIP FRACTURE [None]
  - PRODUCT QUALITY ISSUE [None]
  - HYPERHIDROSIS [None]
  - FALL [None]
